FAERS Safety Report 14804065 (Version 1)
Quarter: 2018Q2

REPORT INFORMATION
  Report Type: Spontaneous
  Country: US (occurrence: US)
  Receive Date: 20180425
  Receipt Date: 20180425
  Transmission Date: 20180711
  Serious: No
  Sender: FDA-Public Use
  Company Number: US-PFIZER INC-2018168326

PATIENT
  Age: 62 Year
  Sex: Female
  Weight: 68.4 kg

DRUGS (1)
  1. PREMARIN [Suspect]
     Active Substance: ESTROGENS, CONJUGATED
     Indication: DYSPAREUNIA
     Dosage: 1 G, 2X/WEEK (1 GRAM HER APPLICATOR TWICE A WEEK)

REACTIONS (4)
  - Expired product administered [Unknown]
  - Poor quality drug administered [Unknown]
  - Intentional product misuse [Unknown]
  - Product quality issue [Unknown]
